FAERS Safety Report 18320649 (Version 1)
Quarter: 2020Q3

REPORT INFORMATION
  Report Type: Spontaneous
  Country: JP (occurrence: JP)
  Receive Date: 20200928
  Receipt Date: 20200928
  Transmission Date: 20201103
  Serious: Yes (Death)
  Sender: FDA-Public Use
  Company Number: JP-PFIZER INC-2020371955

PATIENT
  Age: 5 Decade
  Sex: Female

DRUGS (3)
  1. REVATIO [Suspect]
     Active Substance: SILDENAFIL CITRATE
     Dosage: 30 MG, DAILY
     Route: 048
  2. BOSENTAN. [Concomitant]
     Active Substance: BOSENTAN
     Dosage: 125 MG
  3. REVATIO [Suspect]
     Active Substance: SILDENAFIL CITRATE
     Indication: PULMONARY ARTERIAL HYPERTENSION
     Dosage: 37.5 MG
     Route: 048

REACTIONS (2)
  - Off label use [Unknown]
  - Therapeutic response decreased [Fatal]
